FAERS Safety Report 10024691 (Version 1)
Quarter: 2014Q1

REPORT INFORMATION
  Report Type: Spontaneous
  Country: US (occurrence: None)
  Receive Date: 20140318
  Receipt Date: 20140318
  Transmission Date: 20141002
  Serious: Yes (Disabling)
  Sender: FDA-Public Use
  Company Number: IDR-00850

PATIENT
  Age: 40 Year
  Sex: Female

DRUGS (21)
  1. INDERAL LA [Suspect]
     Indication: HYPERTENSION
     Dosage: UNSPECIFIED DOSE, TWICE, ORAL
     Route: 048
     Dates: start: 1984
  2. TRAZODONE [Concomitant]
  3. HYDROCHLOROTHIAZIDE [Concomitant]
  4. LANTUS (INSULIN GLARGINE) [Concomitant]
  5. DETROL LA (TOLTERODINE) [Concomitant]
  6. GLYBURIDE [Concomitant]
  7. MULTIPLE ORAL VITAMINS [Concomitant]
  8. FREESTYLE LITE (BLOOD GLUCOSE TEST STRIPS) [Concomitant]
  9. BD ULTRA-FINE NANO PEN NEEDLES (INSULIN PEN NEEDLE) [Concomitant]
  10. DIGOXIN [Concomitant]
  11. HYDROCODONE-ACETAMINOPHEN [Concomitant]
  12. CITALOPRAM [Concomitant]
  13. CLONIDINE [Concomitant]
  14. SIMVASTATIN [Concomitant]
  15. HYOSCYAMINE [Concomitant]
  16. FENOFIBRATE [Concomitant]
  17. ETODOLAC CR [Concomitant]
  18. BUSPIRONE [Concomitant]
  19. AVAPRO (IRBESARTAN) [Concomitant]
  20. ASPIRIN (ACETYLSALICYLIC ACID) [Concomitant]
  21. ALBUTEROL AERS [Concomitant]

REACTIONS (5)
  - Vision blurred [None]
  - Blindness transient [None]
  - Insomnia [None]
  - Visual impairment [None]
  - Product quality issue [None]
